FAERS Safety Report 11820775 (Version 1)
Quarter: 2015Q4

REPORT INFORMATION
  Report Type: Spontaneous
  Country: US (occurrence: US)
  Receive Date: 20151210
  Receipt Date: 20151210
  Transmission Date: 20160305
  Serious: No
  Sender: FDA-Public Use
  Company Number: US-JNJFOC-20150519965

PATIENT
  Age: 52 Year
  Sex: Male

DRUGS (11)
  1. IMBRUVICA [Suspect]
     Active Substance: IBRUTINIB
     Indication: CHRONIC LYMPHOCYTIC LEUKAEMIA
     Route: 048
  2. MULTIVITAMINS [Concomitant]
     Active Substance: VITAMINS
  3. IMBRUVICA [Suspect]
     Active Substance: IBRUTINIB
     Indication: CHRONIC LYMPHOCYTIC LEUKAEMIA
     Route: 048
     Dates: start: 20150507
  4. MEGACE [Concomitant]
     Active Substance: MEGESTROL ACETATE
  5. SCOPOLAMINE [Concomitant]
     Active Substance: SCOPOLAMINE
  6. MAGNESIUM [Concomitant]
     Active Substance: MAGNESIUM
  7. PEPCID [Concomitant]
     Active Substance: FAMOTIDINE
  8. COMPAZINE [Concomitant]
     Active Substance: PROCHLORPERAZINE MALEATE
  9. LIALDA [Concomitant]
     Active Substance: MESALAMINE
  10. CLONAZEPAM. [Concomitant]
     Active Substance: CLONAZEPAM
  11. OXYCODONE [Concomitant]
     Active Substance: OXYCODONE

REACTIONS (2)
  - Urine output increased [Unknown]
  - Diarrhoea [Not Recovered/Not Resolved]

NARRATIVE: CASE EVENT DATE: 2015
